FAERS Safety Report 14627574 (Version 1)
Quarter: 2018Q1

REPORT INFORMATION
  Report Type: Spontaneous
  Country: PT (occurrence: PT)
  Receive Date: 20180312
  Receipt Date: 20180312
  Transmission Date: 20180509
  Serious: Yes (Other)
  Sender: FDA-Public Use
  Company Number: PT-MYLANLABS-2018M1014797

PATIENT
  Age: 17 Year

DRUGS (1)
  1. IBUPROFEN. [Suspect]
     Active Substance: IBUPROFEN
     Indication: DRUG PROVOCATION TEST
     Dosage: 40 MG, UNK
     Route: 048

REACTIONS (6)
  - Lip oedema [Unknown]
  - Hypoaesthesia [Unknown]
  - Palmar erythema [Unknown]
  - Generalised oedema [Unknown]
  - Drug hypersensitivity [Unknown]
  - Oedema peripheral [Unknown]
